FAERS Safety Report 5863969-4 (Version None)
Quarter: 2008Q3

REPORT INFORMATION
  Report Type: 
  Country: None (occurrence: None)
  Receive Date: 20080829
  Receipt Date: 20080820
  Transmission Date: 20090109
  Serious: Yes (Hospitalization, Other)
  Sender: FDA-Public Use
  Company Number: PHBS2008IL05488

PATIENT
  Age: 54 Year
  Sex: Female

DRUGS (1)
  1. RITALIN [Suspect]
     Dosage: UNK
     Route: 042

REACTIONS (19)
  - ACTIVITIES OF DAILY LIVING IMPAIRED [None]
  - CHEST X-RAY ABNORMAL [None]
  - DRUG ABUSE [None]
  - DYSPNOEA [None]
  - EMPHYSEMA [None]
  - HEPATITIS C POSITIVE [None]
  - HYPOPERFUSION [None]
  - INCORRECT ROUTE OF DRUG ADMINISTRATION [None]
  - LUNG HYPERINFLATION [None]
  - LUNG TRANSPLANT [None]
  - OXYGEN SATURATION DECREASED [None]
  - OXYGEN SUPPLEMENTATION [None]
  - PNEUMOCONIOSIS [None]
  - PNEUMONIA BACTERIAL [None]
  - PULMONARY FUNCTION TEST ABNORMAL [None]
  - PULMONARY HYPERTENSION [None]
  - RALES [None]
  - RHEUMATOID ARTHRITIS [None]
  - SILICOSIS [None]
